FAERS Safety Report 6981462-2 (Version None)
Quarter: 2010Q3

REPORT INFORMATION
  Report Type: 
  Country: None (occurrence: None)
  Receive Date: 20100914
  Receipt Date: 20100910
  Transmission Date: 20110219
  Serious: Yes (Death)
  Sender: FDA-Public Use
  Company Number: US-GILEAD-2010-0031702

PATIENT
  Sex: Male
  Weight: 65.83 kg

DRUGS (17)
  1. LETAIRIS [Suspect]
     Indication: PULMONARY ARTERIAL HYPERTENSION
     Route: 048
     Dates: start: 20081210
  2. PROTONIX [Concomitant]
  3. XANAX [Concomitant]
  4. PAXIL [Concomitant]
  5. LASIX [Concomitant]
  6. PREDNISONE [Concomitant]
  7. IPRATROPIUM BROMIDE [Concomitant]
  8. NICOTINE [Concomitant]
  9. NOVOLOG [Concomitant]
  10. THEOPHYLLINE [Concomitant]
  11. CALCITRIOL [Concomitant]
  12. ASPIRIN [Concomitant]
  13. ADVAIR DISKUS 100/50 [Concomitant]
  14. POTASSIUM CHLORIDE [Concomitant]
  15. SPIRIVA [Concomitant]
  16. MULTI-VITAMINS [Concomitant]
  17. VITAMIN B6 [Concomitant]

REACTIONS (1)
  - DEATH [None]
